FAERS Safety Report 8511135-6 (Version None)
Quarter: 2012Q3

REPORT INFORMATION
  Report Type: 
  Country: None (occurrence: None)
  Receive Date: 20120702
  Receipt Date: 20120620
  Transmission Date: 20120928
  Serious: Yes (Other)
  Sender: FDA-Public Use
  Company Number: DSA_58126_2012

PATIENT

DRUGS (6)
  1. DOCETAXEL [Suspect]
     Indication: GASTRIC CANCER
     Dosage: (75MG/M2; EVERY 3 WEEKS INTRAVENOUS (NOT OTHERWISE SPECIFIED)
     Route: 042
  2. CORTICOSTEROIDS [Concomitant]
  3. ALL OTHER THERAPEUTIC PRODUCTS [Concomitant]
  4. CISPLATIN [Suspect]
     Indication: GASTRIC CANCER
     Dosage: (75MG/M2; EVERY 3 WEEKS INTRAVENOUS (NOT OTHERWISE SPECIFIED)
     Route: 042
  5. ANTIEMETICS AND ANTINAUSEANTS [Concomitant]
  6. FLUOROURACIL [Suspect]
     Indication: GASTRIC CANCER
     Dosage: (750MG/M2 INTRAVENOUS (NOT OTHERWISE SPECIFIED))
     Route: 042

REACTIONS (1)
  - NEUTROPENIA [None]
